FAERS Safety Report 8191780-0 (Version None)
Quarter: 2012Q1

REPORT INFORMATION
  Report Type: 
  Country: None (occurrence: None)
  Receive Date: 20120307
  Receipt Date: 20120302
  Transmission Date: 20120608
  Serious: Yes (Life-Threatening, Hospitalization)
  Sender: FDA-Public Use
  Company Number: CHPA2012DE003160

PATIENT
  Sex: Female
  Weight: 63 kg

DRUGS (4)
  1. CLEMASTINE FUMARATE [Suspect]
     Dosage: UP TO 5 TABLETS AS A SINGLE DOSE, PRN
     Route: 048
     Dates: start: 19850101
  2. CLEMASTINE FUMARATE [Suspect]
     Dosage: 5 DF, UNK
     Route: 048
     Dates: start: 20120213, end: 20120213
  3. CLEMASTINE FUMARATE [Suspect]
     Indication: SWOLLEN TONGUE
     Dosage: 2 DF, ONCE/SINGLE
     Route: 048
     Dates: start: 20111228, end: 20111228
  4. ACE INHIBITOR NOS [Concomitant]
     Indication: MITRAL VALVE INCOMPETENCE
     Dosage: UNK, UNK

REACTIONS (7)
  - CONDITION AGGRAVATED [None]
  - THERAPEUTIC RESPONSE DECREASED [None]
  - DYSPNOEA [None]
  - SOMNOLENCE [None]
  - HEART RATE INCREASED [None]
  - SWOLLEN TONGUE [None]
  - LARYNGEAL OEDEMA [None]
